FAERS Safety Report 8357722-X (Version None)
Quarter: 2012Q2

REPORT INFORMATION
  Report Type: 
  Country: None (occurrence: None)
  Receive Date: 20120514
  Receipt Date: 20120508
  Transmission Date: 20120825
  Serious: Yes (Hospitalization, Other)
  Sender: FDA-Public Use
  Company Number: US-MERCK-1012USA02520

PATIENT
  Age: 73 Year
  Sex: Female
  Weight: 59 kg

DRUGS (9)
  1. FOSAMAX [Suspect]
     Indication: OSTEOPOROSIS PROPHYLAXIS
     Route: 048
     Dates: start: 20020420, end: 20070525
  2. FOSAMAX [Suspect]
     Indication: OSTEOPENIA
     Route: 048
     Dates: start: 20020420, end: 20070525
  3. ALENDRONATE SODIUM [Suspect]
     Indication: OSTEOPENIA
     Route: 048
     Dates: start: 20090101, end: 20100801
  4. CALCIUM (UNSPECIFIED) [Concomitant]
     Route: 065
     Dates: start: 19810101
  5. FOSAMAX PLUS D [Suspect]
     Indication: OSTEOPOROSIS PROPHYLAXIS
     Route: 048
     Dates: start: 20070623, end: 20081211
  6. FOSAMAX PLUS D [Suspect]
     Indication: OSTEOPENIA
     Route: 048
     Dates: start: 20070623, end: 20081211
  7. ASCORBIC ACID [Concomitant]
     Route: 065
     Dates: start: 19810101
  8. VITAMIN D (UNSPECIFIED) [Concomitant]
     Route: 065
     Dates: start: 19810101
  9. ALENDRONATE SODIUM [Suspect]
     Indication: OSTEOPOROSIS PROPHYLAXIS
     Route: 048
     Dates: start: 20090101, end: 20100801

REACTIONS (19)
  - LUNG DISORDER [None]
  - TENDONITIS [None]
  - BURSITIS [None]
  - SPINAL COMPRESSION FRACTURE [None]
  - LOW TURNOVER OSTEOPATHY [None]
  - DEVICE FAILURE [None]
  - FALL [None]
  - BLOOD PRESSURE INADEQUATELY CONTROLLED [None]
  - CLAVICLE FRACTURE [None]
  - OSTEOARTHRITIS [None]
  - SLEEP DISORDER [None]
  - URINARY TRACT INFECTION [None]
  - FEMUR FRACTURE [None]
  - TOOTH DISORDER [None]
  - BRONCHIECTASIS [None]
  - TIBIA FRACTURE [None]
  - ANAEMIA [None]
  - RIB FRACTURE [None]
  - CHOLELITHIASIS [None]
